FAERS Safety Report 13688570 (Version 1)
Quarter: 2017Q2

REPORT INFORMATION
  Report Type: Spontaneous
  Country: ES (occurrence: ES)
  Receive Date: 20170626
  Receipt Date: 20170626
  Transmission Date: 20170830
  Serious: Yes (Hospitalization)
  Sender: FDA-Public Use
  Company Number: ES-ACCORD-052935

PATIENT
  Sex: Male

DRUGS (7)
  1. CLOMIPRAMINE [Interacting]
     Active Substance: CLOMIPRAMINE
     Indication: PRODUCT USED FOR UNKNOWN INDICATION
     Route: 048
     Dates: start: 2016, end: 2016
  2. LAMOTRIGINE. [Interacting]
     Active Substance: LAMOTRIGINE
     Indication: PRODUCT USED FOR UNKNOWN INDICATION
     Route: 048
     Dates: start: 2016, end: 2016
  3. QUETIAPINE FUMARATE ACCORD [Suspect]
     Active Substance: QUETIAPINE FUMARATE
     Indication: PRODUCT USED FOR UNKNOWN INDICATION
     Dosage: STRENGTH 200 MG
     Route: 048
     Dates: start: 2016, end: 2016
  4. LITHIUM. [Interacting]
     Active Substance: LITHIUM
     Indication: PRODUCT USED FOR UNKNOWN INDICATION
     Dosage: 400 MG / 8 HOURS
     Route: 048
     Dates: start: 2016, end: 2016
  5. LORAZEPAM. [Interacting]
     Active Substance: LORAZEPAM
     Indication: PRODUCT USED FOR UNKNOWN INDICATION
     Route: 048
     Dates: start: 2016, end: 2016
  6. DULOXETINE. [Interacting]
     Active Substance: DULOXETINE
     Indication: PRODUCT USED FOR UNKNOWN INDICATION
     Route: 048
     Dates: start: 2016, end: 2016
  7. ALPRAZOLAM. [Interacting]
     Active Substance: ALPRAZOLAM
     Indication: PRODUCT USED FOR UNKNOWN INDICATION
     Route: 048
     Dates: start: 2016, end: 2016

REACTIONS (10)
  - Tremor [Unknown]
  - Bradyphrenia [Unknown]
  - Dysarthria [Unknown]
  - Feeling jittery [Unknown]
  - Gait disturbance [Unknown]
  - Incorrect dosage administered [Unknown]
  - Anxiety [Unknown]
  - Drug interaction [Unknown]
  - Accidental overdose [Unknown]
  - Asthenia [Unknown]

NARRATIVE: CASE EVENT DATE: 20160927
